FAERS Safety Report 18997027 (Version 1)
Quarter: 2021Q1

REPORT INFORMATION
  Report Type: Spontaneous
  Country: US (occurrence: US)
  Receive Date: 20210311
  Receipt Date: 20210311
  Transmission Date: 20210420
  Serious: No
  Sender: FDA-Public Use
  Company Number: US-CADILA HEALTHCARE LIMITED-US-ZYDUS-056314

PATIENT
  Age: 64 Year
  Sex: Female

DRUGS (2)
  1. VITAMIN D NOS [Suspect]
     Active Substance: VITAMIN D NOS
     Indication: PRODUCT USED FOR UNKNOWN INDICATION
     Dosage: UNK
     Dates: end: 2020
  2. METHOTREXATE 2.5 MILLIGRAM TABLET [Suspect]
     Active Substance: METHOTREXATE
     Indication: RHEUMATOID ARTHRITIS
     Dosage: 2.5 MILLIGRAM; ONCE WEEKLY
     Route: 048

REACTIONS (2)
  - Muscle spasms [Unknown]
  - Rebound effect [Unknown]

NARRATIVE: CASE EVENT DATE: 20200917
